FAERS Safety Report 8272502-1 (Version None)
Quarter: 2012Q2

REPORT INFORMATION
  Report Type: 
  Country: None (occurrence: None)
  Receive Date: 20120410
  Receipt Date: 20120406
  Transmission Date: 20120825
  Serious: No
  Sender: FDA-Public Use
  Company Number: US-PFIZER INC-2012087565

PATIENT
  Sex: Female
  Weight: 53.061 kg

DRUGS (12)
  1. SIMVASTATIN [Concomitant]
     Indication: BLOOD CHOLESTEROL ABNORMAL
     Dosage: 20 MG DAILY
  2. TRAZODONE [Concomitant]
     Indication: MYOCLONUS
     Dosage: 50 MG DAILY
  3. ATENOLOL [Concomitant]
     Indication: HYPERTENSION
     Dosage: 50 MG, 2X/DAY
  4. LYRICA [Suspect]
     Dosage: 300 MG
  5. HYDROCODONE [Concomitant]
     Indication: NECK PAIN
     Dosage: 10/325 MG, AS NEEDED
  6. LOTREL [Concomitant]
     Indication: HYPERTENSION
     Dosage: 5/40 MG, DAILY
  7. KLONOPIN [Concomitant]
     Indication: MYOCLONUS
     Dosage: 2 MG DAILY
  8. LYRICA [Suspect]
     Indication: PROCEDURAL PAIN
     Dosage: UNK
     Route: 048
     Dates: start: 20090101
  9. CYMBALTA [Concomitant]
     Indication: DEPRESSION
     Dosage: 60 MG, 2X/DAY
  10. HYDROCODONE [Concomitant]
     Indication: BACK PAIN
  11. PRILOSEC [Concomitant]
     Indication: GASTROOESOPHAGEAL REFLUX DISEASE
     Dosage: 40 MG, 2X/DAY
  12. CYMBALTA [Concomitant]
     Indication: PAIN

REACTIONS (3)
  - FEELING ABNORMAL [None]
  - FEELING DRUNK [None]
  - DRUG INEFFECTIVE [None]
